FAERS Safety Report 4647860-7 (Version None)
Quarter: 2005Q2

REPORT INFORMATION
  Report Type: 
  Country: None (occurrence: None)
  Receive Date: 20050428
  Receipt Date: 20050422
  Transmission Date: 20051028
  Serious: Yes (Hospitalization)
  Sender: FDA-Public Use
  Company Number: B0379354A

PATIENT
  Age: 71 Year
  Sex: Female

DRUGS (12)
  1. QUILONORM RETARD [Suspect]
     Dosage: 1.5U PER DAY
     Route: 048
     Dates: start: 20030926, end: 20040809
  2. CELECOXIB [Suspect]
     Indication: ILL-DEFINED DISORDER
     Dosage: 200MG TWICE PER DAY
     Route: 048
     Dates: end: 20040809
  3. HYDROCHLOROTHIAZIDE + IRBESARTAN [Suspect]
     Route: 048
  4. ASPIRIN [Concomitant]
     Dosage: 100MG PER DAY
     Route: 048
  5. PROPRANOLOL HYDROCHLORIDE [Concomitant]
     Dosage: 20MG TWICE PER DAY
     Route: 048
     Dates: start: 20040804, end: 20040810
  6. SIMVASTATIN [Concomitant]
     Dosage: 20MG PER DAY
     Route: 048
  7. TRIMIPRAMINE MALEATE [Concomitant]
     Dosage: 75MG PER DAY
     Route: 048
     Dates: start: 20040315, end: 20040809
  8. OXAZEPAM [Concomitant]
     Dosage: 15MG UNKNOWN
     Route: 048
     Dates: start: 20040908
  9. TIZANIDINE HYDROCHLORIDE [Concomitant]
     Dosage: 4MG PER DAY
     Route: 048
     Dates: end: 20040809
  10. GABAPENTIN [Concomitant]
     Dosage: 300MG TWICE PER DAY
     Route: 048
     Dates: end: 20040809
  11. TRAMADOL HCL [Concomitant]
     Dosage: 100MG AS REQUIRED
  12. PHLEBODRIL [Concomitant]
     Dosage: 1U PER DAY
     Route: 048

REACTIONS (5)
  - DRUG LEVEL INCREASED [None]
  - MYOCLONUS [None]
  - PERSONALITY DISORDER [None]
  - POLYDIPSIA [None]
  - TREMOR [None]
